FAERS Safety Report 24566784 (Version 1)
Quarter: 2024Q4

REPORT INFORMATION
  Report Type: Spontaneous
  Country: US (occurrence: US)
  Receive Date: 20241030
  Receipt Date: 20241030
  Transmission Date: 20250114
  Serious: No
  Sender: JOHNSON AND JOHNSON
  Company Number: US-JNJFOC-20241053736

PATIENT

DRUGS (7)
  1. INVEGA SUSTENNA [Interacting]
     Active Substance: PALIPERIDONE PALMITATE
     Indication: Product used for unknown indication
     Route: 030
  2. INVEGA SUSTENNA [Interacting]
     Active Substance: PALIPERIDONE PALMITATE
  3. INVEGA SUSTENNA [Interacting]
     Active Substance: PALIPERIDONE PALMITATE
  4. INVEGA [Interacting]
     Active Substance: PALIPERIDONE
     Indication: Product used for unknown indication
     Route: 048
  5. SEROQUEL [Suspect]
     Active Substance: QUETIAPINE FUMARATE
  6. ABILIFY [Suspect]
     Active Substance: ARIPIPRAZOLE
  7. LITHIUM [Concomitant]
     Active Substance: LITHIUM

REACTIONS (1)
  - Drug interaction [Unknown]
